APPROVED DRUG PRODUCT: LABETALOL HYDROCHLORIDE
Active Ingredient: LABETALOL HYDROCHLORIDE
Strength: 300MG
Dosage Form/Route: TABLET;ORAL
Application: A212719 | Product #003
Applicant: UNICHEM LABORATORIES LTD
Approved: Aug 8, 2022 | RLD: No | RS: No | Type: DISCN